FAERS Safety Report 8627138 (Version 3)
Quarter: 2014Q2

REPORT INFORMATION
  Report Type: Spontaneous
  Country: US (occurrence: US)
  Receive Date: 20120621
  Receipt Date: 20140423
  Transmission Date: 20141212
  Serious: Yes (Death, Other)
  Sender: FDA-Public Use
  Company Number: US-PAR PHARMACEUTICAL, INC-2012SCPR004448

PATIENT
  Sex: 0

DRUGS (2)
  1. MEGESTROL ACETATE [Suspect]
     Indication: MALNUTRITION
     Dosage: 40 MG, TWICE A DAY
     Route: 048
     Dates: start: 20120517, end: 20120526
  2. MEGESTROL ACETATE [Suspect]
     Dosage: UNK, UNKNOWN
     Route: 065

REACTIONS (2)
  - Death [Fatal]
  - Deep vein thrombosis [Not Recovered/Not Resolved]
